FAERS Safety Report 12197418 (Version 2)
Quarter: 2016Q2

REPORT INFORMATION
  Report Type: Report from Study
  Country: BR (occurrence: BR)
  Receive Date: 20160322
  Receipt Date: 20160420
  Transmission Date: 20160815
  Serious: Yes (Death, Life-Threatening, Hospitalization, Disabling, Other)
  Sender: FDA-Public Use
  Company Number: PHHY2014BR130448

PATIENT
  Age: 47 Year
  Sex: Female
  Weight: 90 kg

DRUGS (8)
  1. METICORTEN [Suspect]
     Active Substance: PREDNISONE
     Indication: MYOSITIS
     Dosage: 20 MG, UNK
     Route: 065
  2. LYRICA [Suspect]
     Active Substance: PREGABALIN
     Dosage: 1 DF, TID
     Route: 065
  3. PANTOPRAZOL [Concomitant]
     Active Substance: PANTOPRAZOLE SODIUM
     Indication: ABDOMINAL DISCOMFORT
     Dosage: 1 DF, MORNING
     Route: 065
  4. GILENYA [Suspect]
     Active Substance: FINGOLIMOD HYDROCHLORIDE
     Indication: MULTIPLE SCLEROSIS
     Dosage: 0.5 MG, QD
     Route: 048
     Dates: start: 20140714
  5. LYRICA [Suspect]
     Active Substance: PREGABALIN
     Indication: PROPHYLAXIS
     Dosage: 1 DF, BID
     Route: 065
  6. METICORTEN [Suspect]
     Active Substance: PREDNISONE
     Dosage: 60 MG, UNK
     Route: 065
  7. METICORTEN [Suspect]
     Active Substance: PREDNISONE
     Dosage: 40 MG, UNK
     Route: 065
  8. LEVO-TIROXINA [Concomitant]
     Indication: THYROID DISORDER
     Dosage: 1 DF, QD
     Route: 065

REACTIONS (34)
  - Death [Fatal]
  - Cardiac arrest [Unknown]
  - Multiple sclerosis relapse [Not Recovered/Not Resolved]
  - Abasia [Unknown]
  - Headache [Unknown]
  - Weight increased [Not Recovered/Not Resolved]
  - Tongue paralysis [Recovering/Resolving]
  - Dysarthria [Unknown]
  - Memory impairment [Recovering/Resolving]
  - Pain in extremity [Not Recovered/Not Resolved]
  - Back pain [Recovered/Resolved]
  - Dizziness [Recovered/Resolved]
  - Pain [Unknown]
  - Myositis [Unknown]
  - Paraesthesia [Unknown]
  - Dysstasia [Unknown]
  - Drug ineffective [Unknown]
  - Coma [Unknown]
  - Muscle spasms [Recovering/Resolving]
  - Hypoaesthesia [Recovering/Resolving]
  - Monoplegia [Recovering/Resolving]
  - Feeling cold [Not Recovered/Not Resolved]
  - Muscular weakness [Unknown]
  - Muscle strain [Unknown]
  - Hyperphagia [Unknown]
  - Chest pain [Recovered/Resolved]
  - Fatigue [Unknown]
  - Labyrinthitis [Unknown]
  - Loss of control of legs [Unknown]
  - Chills [Unknown]
  - Malaise [Not Recovered/Not Resolved]
  - Increased appetite [Unknown]
  - Limb deformity [Unknown]
  - Mobility decreased [Unknown]

NARRATIVE: CASE EVENT DATE: 201408
